FAERS Safety Report 9664838 (Version 2)
Quarter: 2013Q4

REPORT INFORMATION
  Report Type: Spontaneous
  Country: DE (occurrence: None)
  Receive Date: 20131031
  Receipt Date: 20131104
  Transmission Date: 20140711
  Serious: Yes (Hospitalization)
  Sender: FDA-Public Use
  Company Number: 1310-1351

PATIENT
  Age: 69 Year
  Sex: Male

DRUGS (1)
  1. EYLEA [Suspect]
     Indication: POLYPOIDAL CHOROIDAL VASCULOPATHY
     Route: 031
     Dates: start: 20130115, end: 20130115

REACTIONS (2)
  - Retinal haemorrhage [None]
  - Retinal pigment epitheliopathy [None]
